FAERS Safety Report 10144672 (Version 1)
Quarter: 2014Q2

REPORT INFORMATION
  Report Type: Spontaneous
  Country: US (occurrence: US)
  Receive Date: 20140430
  Receipt Date: 20140430
  Transmission Date: 20141212
  Serious: No
  Sender: FDA-Public Use
  Company Number: US-SANOFI-AVENTIS-2013SA057361

PATIENT
  Age: 62 Year
  Sex: Male

DRUGS (1)
  1. LOVENOX [Suspect]
     Dosage: SINCE TUESDAY

REACTIONS (3)
  - Dyspnoea [Not Recovered/Not Resolved]
  - Injection site haemorrhage [Not Recovered/Not Resolved]
  - Injection site pain [Not Recovered/Not Resolved]
